FAERS Safety Report 21423896 (Version 4)
Quarter: 2025Q2

REPORT INFORMATION
  Report Type: Report from Study
  Country: US (occurrence: US)
  Receive Date: 20221007
  Receipt Date: 20250616
  Transmission Date: 20250716
  Serious: Yes (Hospitalization, Other)
  Sender: ABBVIE
  Company Number: US-ABBVIE-4137204

PATIENT
  Age: 73 Year
  Sex: Female

DRUGS (8)
  1. VENCLEXTA [Suspect]
     Active Substance: VENETOCLAX
     Indication: Chronic lymphocytic leukaemia
     Route: 048
     Dates: start: 20220126
  2. VENCLEXTA [Suspect]
     Active Substance: VENETOCLAX
     Indication: Chronic lymphocytic leukaemia
     Route: 048
  3. VENCLEXTA [Suspect]
     Active Substance: VENETOCLAX
     Indication: Chronic lymphocytic leukaemia
     Route: 048
     Dates: start: 2021
  4. VENCLEXTA [Suspect]
     Active Substance: VENETOCLAX
     Indication: Chronic lymphocytic leukaemia
     Route: 048
     Dates: start: 20250604
  5. PAXLOVID [Suspect]
     Active Substance: NIRMATRELVIR\RITONAVIR
     Indication: Product used for unknown indication
     Route: 065
  6. Covid-19 Vaccine [Concomitant]
     Indication: COVID-19 immunisation
     Route: 030
  7. Covid-19 Vaccine [Concomitant]
     Indication: COVID-19 immunisation
     Route: 030
  8. Covid-19 Vaccine [Concomitant]
     Indication: COVID-19 immunisation
     Route: 030

REACTIONS (20)
  - Rehabilitation therapy [Unknown]
  - COVID-19 [Recovered/Resolved]
  - Blood glucose increased [Unknown]
  - Irritable bowel syndrome [Unknown]
  - Joint swelling [Unknown]
  - Arthralgia [Unknown]
  - Oedema [Unknown]
  - Peripheral swelling [Not Recovered/Not Resolved]
  - Asthenia [Unknown]
  - Back pain [Unknown]
  - Gait inability [Recovering/Resolving]
  - Adverse drug reaction [Unknown]
  - Urinary incontinence [Unknown]
  - Pain in extremity [Unknown]
  - Neck pain [Unknown]
  - Joint range of motion decreased [Unknown]
  - Hospitalisation [Unknown]
  - Arthritis [Unknown]
  - Muscular weakness [Unknown]
  - Fine motor skill dysfunction [Unknown]

NARRATIVE: CASE EVENT DATE: 20210101
